FAERS Safety Report 12633134 (Version 2)
Quarter: 2016Q3

REPORT INFORMATION
  Report Type: Spontaneous
  Country: US (occurrence: US)
  Receive Date: 20160808
  Receipt Date: 20160808
  Transmission Date: 20161109
  Serious: No
  Sender: FDA-Public Use
  Company Number: US-BEH-2016058539

PATIENT
  Sex: Female
  Weight: 35 kg

DRUGS (26)
  1. DIPHENHYDRAMINE. [Concomitant]
     Active Substance: DIPHENHYDRAMINE
  2. EPIPEN [Concomitant]
     Active Substance: EPINEPHRINE
  3. HEPARIN [Concomitant]
     Active Substance: HEPARIN SODIUM
  4. AFRIN [Concomitant]
     Active Substance: OXYMETAZOLINE
  5. NEOSPORIN [Concomitant]
     Active Substance: BACITRACIN ZINC\NEOMYCIN SULFATE\POLYMYXIN B SULFATE
  6. IBUPROFEN. [Concomitant]
     Active Substance: IBUPROFEN
  7. CEFDINIR. [Concomitant]
     Active Substance: CEFDINIR
  8. NASONEX [Concomitant]
     Active Substance: MOMETASONE FUROATE
  9. ALBUTEROL. [Concomitant]
     Active Substance: ALBUTEROL
  10. PANTOPRAZOLE [Concomitant]
     Active Substance: PANTOPRAZOLE SODIUM
  11. CYANOCOBALAMIN. [Concomitant]
     Active Substance: CYANOCOBALAMIN
  12. ADVIL [Concomitant]
     Active Substance: IBUPROFEN
  13. ZOO CHEWS GUMMIE [Concomitant]
  14. HYDROCODONE BT-IBUPROFEN [Concomitant]
  15. ADVAIR HFA [Concomitant]
     Active Substance: FLUTICASONE PROPIONATE\SALMETEROL XINAFOATE
  16. HIZENTRA [Suspect]
     Active Substance: HUMAN IMMUNOGLOBULIN G
     Indication: IMMUNODEFICIENCY COMMON VARIABLE
     Route: 058
  17. SODIUM CHLORIDE. [Concomitant]
     Active Substance: SODIUM CHLORIDE
  18. ZINC OXIDE OINT [Concomitant]
  19. ONDANSETRON [Concomitant]
     Active Substance: ONDANSETRON
  20. ACETYL L-CARNITINE [Concomitant]
     Active Substance: ACETYLCARNITINE
  21. COENZYME Q10 [Concomitant]
     Active Substance: UBIDECARENONE
  22. CORTIZONE 10 [Concomitant]
     Active Substance: HYDROCORTISONE
  23. ABILIFY [Concomitant]
     Active Substance: ARIPIPRAZOLE
  24. FERROUS SULFATE. [Concomitant]
     Active Substance: FERROUS SULFATE
  25. TRIAMCINOLONE CREAM [Concomitant]
     Active Substance: TRIAMCINOLONE
  26. LIDOCAINE/PRILOCAINE [Concomitant]
     Active Substance: LIDOCAINE\PRILOCAINE

REACTIONS (1)
  - Sinusitis [Unknown]
